FAERS Safety Report 8257286-5 (Version None)
Quarter: 2012Q2

REPORT INFORMATION
  Report Type: 
  Country: None (occurrence: None)
  Receive Date: 20120403
  Receipt Date: 20120323
  Transmission Date: 20120825
  Serious: Yes (Other)
  Sender: FDA-Public Use
  Company Number: CA-JNJFOC-20120312210

PATIENT
  Sex: Male
  Weight: 79 kg

DRUGS (5)
  1. IMURAN [Concomitant]
  2. REMICADE [Suspect]
     Indication: CROHN'S DISEASE
     Dates: start: 20070101
  3. HYDROCHLOROTHIAZIDES [Concomitant]
     Indication: HYPERTENSION
  4. VITAMIN D [Concomitant]
  5. CALCIUM CARBONATE [Concomitant]

REACTIONS (1)
  - LYMPHOMA [None]
